FAERS Safety Report 9645109 (Version 1)
Quarter: 2013Q4

REPORT INFORMATION
  Report Type: Spontaneous
  Country: CA (occurrence: CA)
  Receive Date: 20131025
  Receipt Date: 20131025
  Transmission Date: 20140711
  Serious: Yes (Hospitalization)
  Sender: FDA-Public Use
  Company Number: CA-ROCHE-1292685

PATIENT
  Age: 20 Year
  Sex: Female
  Weight: 57.2 kg

DRUGS (5)
  1. VESANOID [Suspect]
     Indication: PRODUCT USED FOR UNKNOWN INDICATION
     Dosage: THERAPY DURATION: 75.0 DAYS
     Route: 048
  2. FLUCONAZOLE [Interacting]
     Indication: PRODUCT USED FOR UNKNOWN INDICATION
     Dosage: THERAPY DURATION: 75.0 DAYS
     Route: 048
  3. AMOXICILLIN [Concomitant]
     Route: 048
  4. CESAMET [Concomitant]
     Route: 065
  5. CIPROFLOXACIN [Concomitant]
     Route: 048

REACTIONS (7)
  - Blood calcium abnormal [Recovered/Resolved]
  - Drug interaction [Recovered/Resolved]
  - Headache [Recovered/Resolved]
  - Heart rate increased [Recovered/Resolved]
  - Nausea [Recovered/Resolved]
  - Vomiting [Recovered/Resolved]
  - White blood cell count decreased [Recovered/Resolved]
